FAERS Safety Report 11024775 (Version 1)
Quarter: 2015Q2

REPORT INFORMATION
  Report Type: Spontaneous
  Country: US (occurrence: None)
  Receive Date: 20150413
  Receipt Date: 20150413
  Transmission Date: 20150821
  Serious: Yes (Hospitalization)
  Sender: FDA-Public Use
  Company Number: None

PATIENT
  Age: 32 Year
  Sex: Female
  Weight: 73 kg

DRUGS (13)
  1. ALLOPURINOL. [Concomitant]
     Active Substance: ALLOPURINOL
  2. DEXAMETHASONE. [Concomitant]
     Active Substance: DEXAMETHASONE
  3. IFOSFAMIDE. [Suspect]
     Active Substance: IFOSFAMIDE
     Indication: HODGKIN^S DISEASE
     Route: 042
     Dates: start: 20150408, end: 20150410
  4. SODIUM CHLORIDE. [Concomitant]
     Active Substance: SODIUM CHLORIDE
  5. CARBOPLATIN. [Concomitant]
     Active Substance: CARBOPLATIN
  6. ETOPOSIDE. [Concomitant]
     Active Substance: ETOPOSIDE
  7. ONDANSETRON [Concomitant]
     Active Substance: ONDANSETRON
  8. OXYCODONE [Concomitant]
     Active Substance: OXYCODONE
  9. TOPIRAMATE. [Concomitant]
     Active Substance: TOPIRAMATE
  10. ACICLOVIR [Concomitant]
     Active Substance: ACYCLOVIR
  11. LEVETIRACETAM. [Concomitant]
     Active Substance: LEVETIRACETAM
  12. MESNA. [Suspect]
     Active Substance: MESNA
     Indication: PROPHYLAXIS
     Route: 042
     Dates: start: 20150408, end: 20150410
  13. MESNA. [Suspect]
     Active Substance: MESNA
     Indication: CYSTITIS HAEMORRHAGIC
     Route: 042
     Dates: start: 20150408, end: 20150410

REACTIONS (2)
  - Sinus bradycardia [None]
  - Blood pressure decreased [None]

NARRATIVE: CASE EVENT DATE: 20150407
